FAERS Safety Report 6413961-6 (Version None)
Quarter: 2009Q4

REPORT INFORMATION
  Report Type: 
  Country: None (occurrence: None)
  Receive Date: 20091026
  Receipt Date: 20091014
  Transmission Date: 20100525
  Serious: Yes (Other)
  Sender: FDA-Public Use
  Company Number: CA-JNJCH-2009027353

PATIENT
  Sex: Male

DRUGS (1)
  1. BENYLIN EXTRA STRENGTH COUGH + CHEST CONGESTION WITH WARMING SENSATION [Suspect]
     Indication: DRUG USE FOR UNKNOWN INDICATION
     Dosage: TEXT:2 TABLESPOONS UNSPECIFIED
     Route: 048
     Dates: start: 20091012, end: 20091013

REACTIONS (3)
  - DIZZINESS [None]
  - GAIT DISTURBANCE [None]
  - NAUSEA [None]
